FAERS Safety Report 9604730 (Version 1)
Quarter: 2013Q4

REPORT INFORMATION
  Report Type: Report from Study
  Country: US (occurrence: US)
  Receive Date: 20131008
  Receipt Date: 20131008
  Transmission Date: 20140711
  Serious: Yes (Hospitalization)
  Sender: FDA-Public Use
  Company Number: US-SA-2013SA097111

PATIENT
  Sex: Male

DRUGS (2)
  1. AUBAGIO [Suspect]
     Route: 048
  2. AUBAGIO [Suspect]
     Route: 048

REACTIONS (3)
  - Adverse event [Unknown]
  - Fall [Unknown]
  - Asthenia [Unknown]
